FAERS Safety Report 6468305-0 (Version None)
Quarter: 2009Q4

REPORT INFORMATION
  Report Type: 
  Country: None (occurrence: None)
  Receive Date: 20091203
  Receipt Date: 20091130
  Transmission Date: 20100525
  Serious: Yes (Other)
  Sender: FDA-Public Use
  Company Number: US-ASTRAZENECA-2007UW10932

PATIENT
  Age: 14109 Day
  Sex: Female
  Weight: 102.1 kg

DRUGS (23)
  1. SEROQUEL [Suspect]
     Indication: DEPRESSION
     Dosage: 15-100 MG
     Route: 048
     Dates: start: 20011120, end: 20070809
  2. SEROQUEL [Suspect]
     Indication: ANXIETY
     Dosage: 15-100 MG
     Route: 048
     Dates: start: 20011120, end: 20070809
  3. SEROQUEL [Suspect]
     Indication: PSYCHOTIC DISORDER
     Dosage: 15-100 MG
     Route: 048
     Dates: start: 20011120, end: 20070809
  4. SEROQUEL [Suspect]
     Indication: SLEEP DISORDER
     Dosage: 15-100 MG
     Route: 048
     Dates: start: 20011120, end: 20070809
  5. SEROQUEL [Suspect]
     Route: 048
     Dates: start: 20040112, end: 20061025
  6. SEROQUEL [Suspect]
     Route: 048
     Dates: start: 20040112, end: 20061025
  7. SEROQUEL [Suspect]
     Route: 048
     Dates: start: 20040112, end: 20061025
  8. SEROQUEL [Suspect]
     Route: 048
     Dates: start: 20040112, end: 20061025
  9. RISPERDAL [Concomitant]
     Indication: DEPRESSION
     Dosage: 0.25 MG BID TO 1 MG BID
     Route: 048
     Dates: start: 20020808, end: 20070630
  10. PROZAC [Concomitant]
     Dosage: TWO 20 MG TABLETS DAILY
  11. LEXAPRO [Concomitant]
     Dates: start: 20010101
  12. GABITRIL [Concomitant]
     Dates: start: 20040101
  13. ATIVAN [Concomitant]
     Indication: AGITATION
     Dosage: 0.5-1.0 MG
     Route: 048
     Dates: start: 20011120
  14. ATIVAN [Concomitant]
     Indication: ANXIETY
     Dosage: 0.5-1.0 MG
     Route: 048
     Dates: start: 20011120
  15. ATIVAN [Concomitant]
  16. ATIVAN [Concomitant]
  17. KLONOPIN [Concomitant]
  18. CYMBALTA [Concomitant]
     Dosage: TWO 60 MG TABLETS PER DAY
  19. TRAZODONE HCL [Concomitant]
     Indication: INSOMNIA
     Dosage: 50-200 MG
     Route: 048
     Dates: start: 20011120, end: 20070809
  20. TRAZODONE HCL [Concomitant]
     Dosage: TWO 50 MG TABLETS PER DAY
     Dates: start: 20070101
  21. HALDOL [Concomitant]
     Indication: AGITATION
     Route: 048
     Dates: start: 20011120
  22. SERZONE [Concomitant]
     Route: 048
     Dates: start: 20000425
  23. VISTARIL [Concomitant]
     Indication: AGITATION
     Dosage: 25-150 MG
     Route: 048
     Dates: start: 20040106

REACTIONS (4)
  - DIABETES MELLITUS [None]
  - INTERVERTEBRAL DISC PROTRUSION [None]
  - NEUROPATHY PERIPHERAL [None]
  - TYPE 2 DIABETES MELLITUS [None]
